FAERS Safety Report 5935149-5 (Version None)
Quarter: 2008Q4

REPORT INFORMATION
  Report Type: 
  Country: None (occurrence: None)
  Receive Date: 20081030
  Receipt Date: 20081021
  Transmission Date: 20090506
  Serious: Yes (Disabling)
  Sender: FDA-Public Use
  Company Number: BR-BAYER-200819764LA

PATIENT
  Age: 49 Year
  Sex: Female

DRUGS (8)
  1. BETAFERON [Suspect]
     Indication: PRIMARY PROGRESSIVE MULTIPLE SCLEROSIS
     Route: 058
     Dates: start: 20040101, end: 20060101
  2. AMITRIPTYLINE HCL [Concomitant]
     Indication: PRIMARY PROGRESSIVE MULTIPLE SCLEROSIS
     Dosage: UNIT DOSE: 25 MG
     Route: 048
     Dates: start: 20030101
  3. BACLOFEN [Concomitant]
     Indication: MUSCLE SPASMS
     Route: 048
     Dates: start: 20060101
  4. DIAZEPAM [Concomitant]
     Indication: MUSCLE SPASMS
     Dates: start: 20030101
  5. ACETAMINOPHEN W/ CODEINE [Concomitant]
     Indication: PAIN
     Route: 048
     Dates: start: 20030101
  6. BOTOX [Concomitant]
     Indication: MUSCLE SPASMS
     Route: 058
     Dates: start: 20040101
  7. CAPTOPRIL [Concomitant]
     Indication: HYPERTENSION
     Route: 048
     Dates: start: 20030101
  8. CARBAMAZEPINA [Concomitant]
     Indication: PAIN
     Route: 048
     Dates: start: 20030101

REACTIONS (6)
  - ABASIA [None]
  - BLOOD CHOLESTEROL INCREASED [None]
  - FEELING ABNORMAL [None]
  - MOBILITY DECREASED [None]
  - MULTIPLE SCLEROSIS [None]
  - SPEECH DISORDER [None]
